FAERS Safety Report 12679547 (Version 1)
Quarter: 2016Q3

REPORT INFORMATION
  Report Type: Spontaneous
  Country: US (occurrence: None)
  Receive Date: 20160823
  Receipt Date: 20160823
  Transmission Date: 20161109
  Serious: Yes (Hospitalization)
  Sender: FDA-Public Use
  Company Number: None

PATIENT
  Age: 45 Year
  Sex: Female
  Weight: 131 kg

DRUGS (1)
  1. ORITAVANCIN, 1200 MG THE MEDICINES COMPANY [Suspect]
     Active Substance: ORITAVANCIN
     Indication: CELLULITIS
     Route: 042
     Dates: start: 20160815, end: 20160815

REACTIONS (2)
  - Chest pain [None]
  - Burning sensation [None]

NARRATIVE: CASE EVENT DATE: 20160815
